FAERS Safety Report 22799330 (Version 2)
Quarter: 2025Q1

REPORT INFORMATION
  Report Type: Spontaneous
  Country: US (occurrence: US)
  Receive Date: 20230808
  Receipt Date: 20250327
  Transmission Date: 20250409
  Serious: Yes (Hospitalization, Other)
  Sender: PFIZER
  Company Number: US-PFIZER INC-202300227829

PATIENT
  Age: 83 Year
  Sex: Female
  Weight: 73.03 kg

DRUGS (2)
  1. VYNDAMAX [Suspect]
     Active Substance: TAFAMIDIS
     Indication: Amyloidosis
     Dosage: 61 MG, 1X/DAY
  2. VYNDAMAX [Suspect]
     Active Substance: TAFAMIDIS
     Indication: Acquired ATTR amyloidosis

REACTIONS (5)
  - Infection [Unknown]
  - Pneumonia [Unknown]
  - Hypoacusis [Unknown]
  - Disturbance in attention [Unknown]
  - Influenza [Unknown]
